FAERS Safety Report 18724098 (Version 1)
Quarter: 2021Q1

REPORT INFORMATION
  Report Type: Spontaneous
  Country: ZA (occurrence: ZA)
  Receive Date: 20210111
  Receipt Date: 20210111
  Transmission Date: 20210419
  Serious: Yes (Disabling)
  Sender: FDA-Public Use
  Company Number: ZA-EMD SERONO-9211442

PATIENT
  Age: 28 Year
  Sex: Female
  Weight: 77 kg

DRUGS (1)
  1. REBIF [Suspect]
     Active Substance: INTERFERON BETA-1A
     Indication: RELAPSING-REMITTING MULTIPLE SCLEROSIS
     Dosage: AUTOINJECTOR (UNSPECIIFED)
     Route: 058
     Dates: start: 2009, end: 2015

REACTIONS (4)
  - Fat necrosis [Not Recovered/Not Resolved]
  - Scar pain [Unknown]
  - Weight decreased [Unknown]
  - Scar [Not Recovered/Not Resolved]

NARRATIVE: CASE EVENT DATE: 2011
